FAERS Safety Report 7112984-1 (Version None)
Quarter: 2010Q4

REPORT INFORMATION
  Report Type: 
  Country: None (occurrence: None)
  Receive Date: 20101119
  Receipt Date: 20101115
  Transmission Date: 20110411
  Serious: Yes (Other)
  Sender: FDA-Public Use
  Company Number: FI-PFIZER INC-2010125144

PATIENT
  Age: 1 Day
  Sex: Male
  Weight: 4.85 kg

DRUGS (12)
  1. REVATIO [Suspect]
     Indication: PULMONARY HYPERTENSION
     Dosage: 0.4 MG, SINGLE DOSE
     Route: 042
     Dates: start: 20100914, end: 20100914
  2. PROSTIVAS [Concomitant]
     Indication: PATENT DUCTUS ARTERIOSUS
     Dosage: .05 MCG/KG/MIN
     Route: 042
     Dates: start: 20100914, end: 20100928
  3. PRIMACOR [Concomitant]
     Indication: PULMONARY HYPERTENSION
     Dosage: 0,5 MICROGRAMS/KILOGRAM/MINUTE
     Route: 042
     Dates: start: 20100914
  4. INOMAX [Concomitant]
     Indication: PULMONARY HYPERTENSION
     Dosage: 20 PARTS PER MINUTE
     Route: 055
     Dates: start: 20100914
  5. ADRENALIN [Concomitant]
     Dosage: 0.05 MICROGRAMS/KILOGRAM/MINUTE
     Route: 042
     Dates: start: 20100914, end: 20100918
  6. NOVORAPID [Concomitant]
     Dosage: UNK
     Dates: start: 20100901
  7. MORPHIN [Concomitant]
     Indication: ANALGESIC THERAPY
     Dosage: 30 MICROGRAMS/KILOGRAM/HOUR
     Route: 042
     Dates: start: 20100914
  8. MORPHIN [Concomitant]
     Indication: SEDATION
  9. NEXIUM [Concomitant]
     Dosage: UNK
     Dates: start: 20100901
  10. CEFUROXIME [Concomitant]
     Dosage: UNK
     Dates: start: 20100901
  11. MIDAZOLAM [Concomitant]
     Indication: SEDATION
     Dosage: 0.1 MILLIGRAMS/KILOGRAM/HOUR
     Route: 042
     Dates: start: 20100914
  12. PHENOBARBITAL [Concomitant]
     Indication: TARDIVE DYSKINESIA
     Dosage: 15 MG/KG
     Route: 042
     Dates: start: 20100914, end: 20100915

REACTIONS (2)
  - HYPOTENSION [None]
  - ILL-DEFINED DISORDER [None]
